FAERS Safety Report 4817976-0 (Version None)
Quarter: 2005Q4

REPORT INFORMATION
  Report Type: 
  Country: None (occurrence: None)
  Receive Date: 20051102
  Receipt Date: 20051024
  Transmission Date: 20060501
  Serious: Yes (Death, Hospitalization)
  Sender: FDA-Public Use
  Company Number: CA-JNJFOC-20050902349

PATIENT
  Sex: Female
  Weight: 74 kg

DRUGS (3)
  1. REMICADE [Suspect]
     Indication: CROHN'S DISEASE
     Dosage: TREATMENT START DATE ^SPRING 2005^
     Route: 042
  2. MORPHINE [Concomitant]
     Route: 048
  3. 5-ASA [Concomitant]
     Route: 048

REACTIONS (2)
  - POST PROCEDURAL COMPLICATION [None]
  - THYROID GLAND CANCER [None]
